FAERS Safety Report 4560376-1 (Version None)
Quarter: 2005Q1

REPORT INFORMATION
  Report Type: 
  Country: None (occurrence: None)
  Receive Date: 20050125
  Receipt Date: 20041222
  Transmission Date: 20050727
  Serious: Yes (Hospitalization, Other)
  Sender: FDA-Public Use
  Company Number: GB-JNJFOC-20041202496

PATIENT
  Age: 13 Year
  Sex: Female
  Weight: 50 kg

DRUGS (5)
  1. VERMOX [Suspect]
     Indication: DRUG USE FOR UNKNOWN INDICATION
     Route: 049
     Dates: start: 20041119, end: 20041202
  2. YENTREVE [Interacting]
     Indication: STRESS INCONTINENCE
     Route: 049
  3. TEGRETOL [Concomitant]
     Indication: EPILEPSY
     Route: 065
     Dates: start: 20010101
  4. MEFENAMIC ACID [Concomitant]
     Indication: DYSMENORRHOEA
     Route: 065
     Dates: start: 20020101
  5. AMOXICILLIN [Concomitant]
     Indication: URINARY TRACT INFECTION
     Route: 065
     Dates: start: 20041124

REACTIONS (2)
  - CONVULSION [None]
  - DRUG INTERACTION [None]
